FAERS Safety Report 7713729-4 (Version None)
Quarter: 2011Q3

REPORT INFORMATION
  Report Type: 
  Country: None (occurrence: None)
  Receive Date: 20110826
  Receipt Date: 20110822
  Transmission Date: 20111222
  Serious: Yes (Hospitalization, Other)
  Sender: FDA-Public Use
  Company Number: FR-ABBOTT-11P-056-0848468-00

PATIENT
  Age: 26 Year
  Sex: Female

DRUGS (8)
  1. LAMOTRIGINE [Suspect]
     Indication: EPILEPSY
     Route: 048
     Dates: start: 20110725, end: 20110725
  2. FELBAMATE [Suspect]
     Route: 048
  3. DEPAKENE [Suspect]
     Indication: EPILEPSY
     Route: 048
     Dates: start: 20110725, end: 20110725
  4. DEPAKENE [Suspect]
     Route: 048
  5. FELBAMATE [Suspect]
     Indication: EPILEPSY
     Route: 048
     Dates: start: 20110725, end: 20110725
  6. KEPPRA [Suspect]
     Route: 048
  7. KEPPRA [Suspect]
     Indication: EPILEPSY
     Route: 048
     Dates: start: 20110725, end: 20110725
  8. LAMOTRIGINE [Suspect]
     Route: 048

REACTIONS (5)
  - VERTIGO [None]
  - OVERDOSE [None]
  - SPEECH DISORDER [None]
  - MEDICATION ERROR [None]
  - DIZZINESS [None]
